FAERS Safety Report 7617865-2 (Version None)
Quarter: 2011Q3

REPORT INFORMATION
  Report Type: 
  Country: None (occurrence: None)
  Receive Date: 20110718
  Receipt Date: 20110711
  Transmission Date: 20111222
  Serious: Yes (Other)
  Sender: FDA-Public Use
  Company Number: GB-SANOFI-AVENTIS-2011SA034380

PATIENT
  Age: 73 Year
  Sex: Male

DRUGS (4)
  1. PLAVIX [Suspect]
     Route: 048
     Dates: start: 20060101
  2. RAMIPRIL [Concomitant]
  3. BISOPROLOL [Concomitant]
  4. ATORVASTATIN [Concomitant]

REACTIONS (2)
  - BLADDER CANCER [None]
  - CONSTIPATION [None]
